FAERS Safety Report 11273761 (Version 1)
Quarter: 2015Q3

REPORT INFORMATION
  Report Type: Spontaneous
  Country: US (occurrence: US)
  Receive Date: 20150715
  Receipt Date: 20150715
  Transmission Date: 20151125
  Serious: No
  Sender: FDA-Public Use
  Company Number: US-ENDO PHARMACEUTICALS INC.-201407002

PATIENT
  Age: 59 Year
  Sex: Male
  Weight: 97.61 kg

DRUGS (5)
  1. VALIUM [Concomitant]
     Active Substance: DIAZEPAM
     Indication: ANXIETY
  2. EDEX [Suspect]
     Active Substance: ALPROSTADIL
     Route: 017
     Dates: start: 2014
  3. PAXIL [Concomitant]
     Active Substance: PAROXETINE HYDROCHLORIDE
     Indication: ANXIETY
  4. EDEX [Suspect]
     Active Substance: ALPROSTADIL
     Indication: ERECTILE DYSFUNCTION
     Route: 017
     Dates: start: 201406
  5. EDEX [Suspect]
     Active Substance: ALPROSTADIL
     Dosage: LESS THAN 10 MCG
     Route: 017
     Dates: start: 2014

REACTIONS (4)
  - Painful erection [Unknown]
  - Underdose [Unknown]
  - Arthralgia [Unknown]
  - Erection increased [Unknown]
